FAERS Safety Report 9881899 (Version 1)
Quarter: 2014Q1

REPORT INFORMATION
  Report Type: Spontaneous
  Country: US (occurrence: None)
  Receive Date: 20140205
  Receipt Date: 20140205
  Transmission Date: 20141002
  Serious: Yes (Other)
  Sender: FDA-Public Use
  Company Number: IMP_07447_2014

PATIENT
  Age: 58 Year
  Sex: 0
  Weight: 81.65 kg

DRUGS (1)
  1. BUPROPION 150 MG [Suspect]
     Indication: DEPRESSION
     Route: 048
     Dates: end: 20130913

REACTIONS (3)
  - Drug ineffective [None]
  - Depression [None]
  - Product odour abnormal [None]
